FAERS Safety Report 7519712-6 (Version None)
Quarter: 2011Q2

REPORT INFORMATION
  Report Type: 
  Country: None (occurrence: None)
  Receive Date: 20110524
  Receipt Date: 20110516
  Transmission Date: 20111010
  Serious: Yes (Hospitalization)
  Sender: FDA-Public Use
  Company Number: 1000021065

PATIENT
  Age: 70 Year
  Sex: Female

DRUGS (6)
  1. PRAZEPAM [Concomitant]
  2. TAHOR (ATORVASTATIN CALCIUM) (TABLETS) (ATORVASTATIN CALCIUM) [Concomitant]
  3. 1-ALPHA (ALFACALCIDOL) (ALFACALCIDOL) [Concomitant]
  4. KENZEN (CANDESARTAN CILEXETIL) (CANDESARTAN CILEXETIL) [Concomitant]
  5. ESCITALOPRAM [Suspect]
     Indication: DEPRESSION
     Dosage: ORAL
     Route: 048
     Dates: start: 20100601, end: 20100901
  6. TARDYFERON (FERROUS SULFATE) (FERROUS SULFATE) [Concomitant]

REACTIONS (1)
  - TUBULOINTERSTITIAL NEPHRITIS [None]
